FAERS Safety Report 4549152-3 (Version None)
Quarter: 2005Q1

REPORT INFORMATION
  Report Type: 
  Country: None (occurrence: None)
  Receive Date: 20050107
  Receipt Date: 20050107
  Transmission Date: 20050727
  Serious: No
  Sender: FDA-Public Use
  Company Number: None

PATIENT
  Age: 39 Year
  Sex: Female
  Weight: 116.1208 kg

DRUGS (1)
  1. LAMICTAL [Suspect]
     Indication: MIGRAINE
     Dosage: 100 MG  TWICE A DAY ORAL
     Route: 048
     Dates: start: 20040103, end: 20041118

REACTIONS (4)
  - EXCORIATION [None]
  - RASH ERYTHEMATOUS [None]
  - RASH PRURITIC [None]
  - THERAPY NON-RESPONDER [None]
